FAERS Safety Report 4604969-1 (Version None)
Quarter: 2005Q1

REPORT INFORMATION
  Report Type: 
  Country: None (occurrence: None)
  Receive Date: 20050311
  Receipt Date: 20050301
  Transmission Date: 20050727
  Serious: Yes (Other)
  Sender: FDA-Public Use
  Company Number: PHEH2005US02627

PATIENT
  Age: 39 Year
  Sex: Female

DRUGS (3)
  1. TEGRETOL [Suspect]
     Indication: TEMPORAL LOBE EPILEPSY
     Dosage: 500 TO 600 MG/DAY
     Route: 048
     Dates: start: 19850101
  2. THYROID TAB [Concomitant]
  3. ALBUTEROL [Concomitant]

REACTIONS (8)
  - ANXIETY [None]
  - ASTHENIA [None]
  - DYSKINESIA [None]
  - HYPOGLYCAEMIA [None]
  - MUSCLE TWITCHING [None]
  - PARAESTHESIA [None]
  - RHINORRHOEA [None]
  - TINNITUS [None]
